FAERS Safety Report 7486267-4 (Version None)
Quarter: 2011Q2

REPORT INFORMATION
  Report Type: 
  Country: None (occurrence: None)
  Receive Date: 20110517
  Receipt Date: 20110329
  Transmission Date: 20111010
  Serious: No
  Sender: FDA-Public Use
  Company Number: A0920440A

PATIENT
  Age: 52 Year
  Sex: Male

DRUGS (13)
  1. AMLODIPINE BESYLATE [Concomitant]
  2. HYDROMORPHONE HCL [Concomitant]
  3. FUROSEMIDE [Concomitant]
  4. OXYCONTIN [Concomitant]
  5. VOTRIENT [Suspect]
     Dosage: 4TAB PER DAY
     Route: 048
     Dates: start: 20110323
  6. LISINOPRIL [Concomitant]
  7. MIRALAX [Concomitant]
  8. DOCUSATE [Concomitant]
  9. MIRALAX [Concomitant]
  10. POTASSIUM CL [Concomitant]
  11. ALLOPURINOL [Concomitant]
  12. SENNA-MINT WAF [Concomitant]
  13. GABAPENTIN [Concomitant]

REACTIONS (1)
  - CONSTIPATION [None]
